FAERS Safety Report 9919679 (Version 2)
Quarter: 2014Q2

REPORT INFORMATION
  Report Type: Spontaneous
  Country: IT (occurrence: IT)
  Receive Date: 20140224
  Receipt Date: 20140502
  Transmission Date: 20141212
  Serious: Yes (Hospitalization)
  Sender: FDA-Public Use
  Company Number: IT-BRISTOL-MYERS SQUIBB COMPANY-20217873

PATIENT
  Age: 82 Year
  Sex: Female

DRUGS (9)
  1. WARFARIN SODIUM [Suspect]
     Indication: ATRIAL FIBRILLATION
     Dosage: INTER-14DEC13
     Route: 048
     Dates: start: 20090301
  2. DIGOXIN [Suspect]
     Indication: ATRIAL FIBRILLATION
     Dosage: INTER-14DEC13
     Route: 048
     Dates: start: 20090101
  3. LASIX [Concomitant]
     Dosage: 25MG TABS
  4. LASITONE [Concomitant]
     Dosage: 25+37 MG CAPS
  5. SELOKEN [Concomitant]
     Dosage: 100 MG TABS
  6. DIBASE [Concomitant]
     Dosage: 10 IU/ML ORAL DROPS SOLUTION
     Route: 048
  7. TAVOR [Concomitant]
     Dosage: 1 MG TABS
  8. OPTINATE [Concomitant]
     Dosage: 75MG TABS
  9. LEXOTAN [Concomitant]
     Dosage: 2.5 MG/ML DROPS SOLUTION
     Route: 048

REACTIONS (2)
  - International normalised ratio increased [Recovered/Resolved]
  - Cardioactive drug level increased [Recovered/Resolved]
